FAERS Safety Report 10904142 (Version 2)
Quarter: 2015Q2

REPORT INFORMATION
  Report Type: Report from Study
  Country: KR (occurrence: KR)
  Receive Date: 20150311
  Receipt Date: 20150407
  Transmission Date: 20150821
  Serious: Yes (Hospitalization)
  Sender: FDA-Public Use
  Company Number: KR-BRISTOL-MYERS SQUIBB COMPANY-BMS-2015-013088

PATIENT
  Age: 56 Year
  Sex: Female

DRUGS (4)
  1. GABAPENTIN. [Concomitant]
     Active Substance: GABAPENTIN
     Indication: PRODUCT USED FOR UNKNOWN INDICATION
     Route: 065
  2. ZOVIRAX [Concomitant]
     Active Substance: ACYCLOVIR
     Indication: PRODUCT USED FOR UNKNOWN INDICATION
     Dosage: 250 MG, BID
     Route: 042
  3. IPILIMUMAB [Suspect]
     Active Substance: IPILIMUMAB
     Indication: MALIGNANT MELANOMA
     Dosage: 100 MG, Q3WK
     Route: 042
     Dates: start: 20150130
  4. MYPOL [Concomitant]
     Indication: PRODUCT USED FOR UNKNOWN INDICATION
     Route: 065

REACTIONS (2)
  - Back pain [Recovered/Resolved]
  - Herpes zoster [Recovered/Resolved]

NARRATIVE: CASE EVENT DATE: 20150209
